FAERS Safety Report 23563491 (Version 3)
Quarter: 2024Q1

REPORT INFORMATION
  Report Type: Other
  Country: CL (occurrence: None)
  Receive Date: 20240226
  Receipt Date: 20240312
  Transmission Date: 20240410
  Serious: Yes (Hospitalization, Other)
  Sender: FDA-Public Use
  Company Number: CL-ROCHE-3510366

PATIENT
  Age: 43 Year
  Sex: Female
  Weight: 66 kg

DRUGS (7)
  1. OCREVUS [Suspect]
     Active Substance: OCRELIZUMAB
     Indication: Multiple sclerosis
     Route: 042
     Dates: start: 2019
  2. BRINTELLIX [Concomitant]
     Active Substance: VORTIOXETINE HYDROBROMIDE
  3. SOMNO [Concomitant]
  4. TOPIRAMATE [Concomitant]
     Active Substance: TOPIRAMATE
     Indication: Seizure
  5. CIBLEX [Concomitant]
  6. LORAZEPAM [Concomitant]
     Active Substance: LORAZEPAM
  7. PREGABALIN [Concomitant]
     Active Substance: PREGABALIN

REACTIONS (24)
  - COVID-19 [Recovered/Resolved with Sequelae]
  - Acute respiratory failure [Unknown]
  - Pneumonia bacterial [Recovering/Resolving]
  - Secondary immunodeficiency [Unknown]
  - Hepatic enzyme abnormal [Unknown]
  - Coma [Unknown]
  - Pneumonia viral [Unknown]
  - Acute kidney injury [Recovered/Resolved]
  - Dermatitis allergic [Unknown]
  - Dyspnoea [Unknown]
  - Pyrexia [Recovered/Resolved]
  - Tachycardia [Unknown]
  - Hypotension [Unknown]
  - Infection [Unknown]
  - Pleural effusion [Unknown]
  - Lymphadenopathy mediastinal [Unknown]
  - Hilar lymphadenopathy [Unknown]
  - Poor venous access [Unknown]
  - Immunosuppression [Unknown]
  - Impaired driving ability [Unknown]
  - Lung disorder [Unknown]
  - Tremor [Unknown]
  - Cough [Unknown]
  - Apathy [Unknown]

NARRATIVE: CASE EVENT DATE: 20210101
